FAERS Safety Report 9105851 (Version 2)
Quarter: 2013Q1

REPORT INFORMATION
  Report Type: Spontaneous
  Country: DE (occurrence: DE)
  Receive Date: 20130220
  Receipt Date: 20130313
  Transmission Date: 20140127
  Serious: Yes (Other)
  Sender: FDA-Public Use
  Company Number: DE-JNJFOC-20130207641

PATIENT
  Age: 82 Year
  Sex: Male
  Weight: 90 kg

DRUGS (6)
  1. XARELTO [Suspect]
     Indication: ATRIAL FIBRILLATION
     Route: 048
  2. XARELTO [Suspect]
     Indication: CEREBROVASCULAR ACCIDENT PROPHYLAXIS
     Route: 048
  3. ACETYL SALICYLIC ACID [Concomitant]
     Route: 065
  4. BISOPROLOL [Concomitant]
     Indication: CORONARY ARTERY DISEASE
     Route: 065
  5. CANDESARTAN [Concomitant]
     Indication: CORONARY ARTERY DISEASE
     Route: 065
  6. TORASEMID [Concomitant]
     Route: 065

REACTIONS (1)
  - Atrial thrombosis [Unknown]
